FAERS Safety Report 21684207 (Version 1)
Quarter: 2022Q4

REPORT INFORMATION
  Report Type: Spontaneous
  Country: US (occurrence: None)
  Receive Date: 20221205
  Receipt Date: 20221205
  Transmission Date: 20230112
  Serious: No
  Sender: FDA-Public Use
  Company Number: None

PATIENT
  Age: 80 Year
  Sex: Male
  Weight: 86.18 kg

DRUGS (1)
  1. RIVASTIGMINE TRANSDERMAL SYSTEM [Suspect]
     Active Substance: RIVASTIGMINE
     Indication: Dementia with Lewy bodies
     Dosage: OTHER STRENGTH : 4.6MG/24 HOURS;?OTHER FREQUENCY : APPLY 1 PATCH TOPI;?
     Route: 003
     Dates: start: 202105

REACTIONS (2)
  - Application site erythema [None]
  - Dermatitis contact [None]
